FAERS Safety Report 11595000 (Version 4)
Quarter: 2015Q4

REPORT INFORMATION
  Report Type: Spontaneous
  Country: JP (occurrence: JP)
  Receive Date: 20151005
  Receipt Date: 20151201
  Transmission Date: 20160304
  Serious: Yes (Other)
  Sender: FDA-Public Use
  Company Number: JP-AMGEN-JPNSP2015102837

PATIENT
  Age: 70 Year
  Sex: Female

DRUGS (7)
  1. CALONAL [Concomitant]
     Active Substance: ACETAMINOPHEN
     Indication: COMPRESSION FRACTURE
     Dosage: 200 MUG, QD
     Route: 048
     Dates: start: 20140717, end: 20150114
  2. TAKEPRON [Concomitant]
     Active Substance: LANSOPRAZOLE
     Indication: GASTRIC ULCER
     Dosage: 15 MG, QD
     Route: 048
     Dates: start: 20130725
  3. CELECOX [Concomitant]
     Active Substance: CELECOXIB
     Indication: COMPRESSION FRACTURE
     Dosage: 100 MG, QD
     Route: 048
     Dates: start: 20131008, end: 20150114
  4. PRALIA [Suspect]
     Active Substance: DENOSUMAB
     Indication: OSTEOPOROSIS
     Dosage: 60 MG, Q6MO
     Route: 058
     Dates: start: 20140703, end: 20140703
  5. EDIROL [Concomitant]
     Active Substance: ELDECALCITOL
     Indication: OSTEOPOROSIS
     Dosage: 0.75 MUG, QD
     Route: 048
     Dates: start: 20140703, end: 20140903
  6. ASPARA-CA [Concomitant]
     Active Substance: CALCIUM ASPARTATE
     Indication: OSTEOPOROSIS
     Dosage: 200 MG, TID
     Route: 048
     Dates: start: 20140703, end: 20140903
  7. REBAMIPIDE [Concomitant]
     Active Substance: REBAMIPIDE
     Indication: CHRONIC GASTRITIS
     Dosage: 100 MG, BID
     Route: 048
     Dates: start: 20130725

REACTIONS (1)
  - Osteonecrosis of jaw [Recovering/Resolving]

NARRATIVE: CASE EVENT DATE: 201408
